FAERS Safety Report 13856310 (Version 3)
Quarter: 2018Q1

REPORT INFORMATION
  Report Type: Report from Study
  Country: BR (occurrence: BR)
  Receive Date: 20170810
  Receipt Date: 20180112
  Transmission Date: 20180508
  Serious: Yes (Hospitalization, Other)
  Sender: FDA-Public Use
  Company Number: PHHY2017BR080667

PATIENT
  Age: 80 Year
  Sex: Male
  Weight: 80 kg

DRUGS (10)
  1. DAKLINZA [Concomitant]
     Active Substance: DACLATASVIR
     Indication: HEPATITIS C
     Dosage: 1 DF, QD
     Route: 048
     Dates: start: 20171201
  2. EXELON PATCH [Suspect]
     Active Substance: RIVASTIGMINE
     Indication: DEMENTIA ALZHEIMER^S TYPE
     Dosage: 4.6 MG, QD, PATCH (5 CM2) IN THE BEGINNING OF 2017
     Route: 062
     Dates: start: 2017
  3. GALVUS MET [Concomitant]
     Active Substance: METFORMIN HYDROCHLORIDE\VILDAGLIPTIN
     Indication: DIABETES MELLITUS
     Dosage: 2 DF, QD (METFORMIN 50 MG, VILDAGLIPTIN 1000 MG)
     Route: 048
  4. XARELTO [Suspect]
     Active Substance: RIVAROXABAN
     Indication: ANTICOAGULANT THERAPY
     Dosage: 1 DF, QD
     Route: 048
  5. SPIRONOLACTONE. [Concomitant]
     Active Substance: SPIRONOLACTONE
     Indication: DIURETIC THERAPY
     Dosage: 2 DF, QD
     Route: 048
     Dates: start: 201709
  6. SYNTHROID [Concomitant]
     Active Substance: LEVOTHYROXINE SODIUM
     Indication: THYROID MASS
     Dosage: 1 DF, QD 2 YEARS AGO
     Route: 048
  7. SOVALDI [Concomitant]
     Active Substance: SOFOSBUVIR
     Indication: HEPATITIS C
     Dosage: 1 DF, QD
     Route: 048
     Dates: start: 20171201
  8. INSULIN [Concomitant]
     Active Substance: INSULIN NOS
     Indication: PRODUCT USED FOR UNKNOWN INDICATION
     Route: 065
  9. NORFLOXACIN [Concomitant]
     Active Substance: NORFLOXACIN
     Indication: PRODUCT USED FOR UNKNOWN INDICATION
     Dosage: 1 DF, QD
     Route: 048
     Dates: start: 201710
  10. FUROSEMIDE. [Concomitant]
     Active Substance: FUROSEMIDE
     Indication: PRODUCT USED FOR UNKNOWN INDICATION
     Dosage: 2 DF, QD
     Route: 048
     Dates: start: 201709

REACTIONS (16)
  - Ascites [Recovering/Resolving]
  - Localised oedema [Recovered/Resolved]
  - Varices oesophageal [Recovering/Resolving]
  - Asthenia [Recovering/Resolving]
  - Post procedural discharge [Recovered/Resolved]
  - Mood altered [Not Recovered/Not Resolved]
  - Peripheral swelling [Recovered/Resolved]
  - Haematoma [Recovered/Resolved]
  - Abnormal behaviour [Not Recovered/Not Resolved]
  - Confusional state [Recovered/Resolved]
  - Decreased appetite [Recovering/Resolving]
  - Abdominal infection [Recovering/Resolving]
  - Weight decreased [Recovering/Resolving]
  - Hepatic cirrhosis [Recovering/Resolving]
  - Inappropriate schedule of drug administration [Unknown]
  - Vitamin D decreased [Recovering/Resolving]

NARRATIVE: CASE EVENT DATE: 201704
